FAERS Safety Report 7414099-1 (Version None)
Quarter: 2011Q2

REPORT INFORMATION
  Report Type: 
  Country: None (occurrence: None)
  Receive Date: 20110411
  Receipt Date: 20110411
  Transmission Date: 20111010
  Serious: Yes (Life-Threatening)
  Sender: FDA-Public Use
  Company Number: None

PATIENT
  Sex: Male

DRUGS (3)
  1. PROGRAF [Suspect]
  2. PREDNISONE [Concomitant]
  3. FLOMAX [Suspect]

REACTIONS (2)
  - MEDICATION ERROR [None]
  - DRUG DISPENSING ERROR [None]
